FAERS Safety Report 6525582-5 (Version None)
Quarter: 2010Q1

REPORT INFORMATION
  Report Type: 
  Country: None (occurrence: None)
  Receive Date: 20100104
  Receipt Date: 20091228
  Transmission Date: 20100710
  Serious: Yes (Other)
  Sender: FDA-Public Use
  Company Number: US-PFIZER INC-2009315736

PATIENT
  Sex: Female
  Weight: 106.1 kg

DRUGS (13)
  1. ESTRING [Suspect]
     Dosage: UNK
  2. ASPIRIN [Concomitant]
     Dosage: UNK
  3. CLONAZEPAM [Concomitant]
     Dosage: UNK
  4. NEXIUM [Concomitant]
     Dosage: UNK
  5. PREVACID [Concomitant]
     Dosage: UNK
  6. ZOCOR [Concomitant]
     Dosage: UNK
  7. EFFEXOR [Concomitant]
     Dosage: UNK
  8. COZAAR [Concomitant]
     Dosage: UNK
  9. MAGNESIUM [Concomitant]
     Dosage: UNK
  10. TRAMADOL [Concomitant]
     Dosage: UNK
  11. LOPRESSOR [Concomitant]
     Dosage: UNK
  12. EDECRIN [Concomitant]
     Dosage: UNK
  13. SYSTANE [Concomitant]
     Dosage: UNK

REACTIONS (2)
  - BACK DISORDER [None]
  - BACK PAIN [None]
